FAERS Safety Report 15296883 (Version 1)
Quarter: 2018Q3

REPORT INFORMATION
  Report Type: Spontaneous
  Country: US (occurrence: US)
  Receive Date: 20180820
  Receipt Date: 20180820
  Transmission Date: 20181010
  Serious: Yes (Other)
  Sender: FDA-Public Use
  Company Number: US-SA-2018SA222436

PATIENT
  Sex: Male

DRUGS (8)
  1. PLETAL [Concomitant]
     Active Substance: CILOSTAZOL
  2. SPIRIVA [Concomitant]
     Active Substance: TIOTROPIUM BROMIDE MONOHYDRATE
  3. ALIROCUMAB PREFILLED PEN [Suspect]
     Active Substance: ALIROCUMAB
     Dosage: 1 DF, QOW
     Route: 058
     Dates: start: 20170129
  4. PANTOPRAZOLE [Concomitant]
     Active Substance: PANTOPRAZOLE
  5. PRALUENT [Suspect]
     Active Substance: ALIROCUMAB
     Dosage: 1 DF, QOW
     Route: 058
     Dates: start: 20180129
  6. ASPIRIN [ACETYLSALICYLIC ACID] [Concomitant]
     Active Substance: ASPIRIN
  7. VENTOLINE [SALBUTAMOL] [Concomitant]
  8. CELEBREX [Concomitant]
     Active Substance: CELECOXIB

REACTIONS (3)
  - Renal cyst [Unknown]
  - Injection site pruritus [Unknown]
  - Injection site swelling [Unknown]
